FAERS Safety Report 4551366-3 (Version None)
Quarter: 2005Q1

REPORT INFORMATION
  Report Type: 
  Country: None (occurrence: None)
  Receive Date: 20050110
  Receipt Date: 20041225
  Transmission Date: 20050727
  Serious: Yes (Death)
  Sender: FDA-Public Use
  Company Number: 2004EU002272

PATIENT
  Age: 43 Year
  Sex: Female

DRUGS (4)
  1. PROGRAF [Suspect]
     Indication: RENAL TRANSPLANT
     Dosage: 4.00 MG, ORAL
     Route: 048
     Dates: start: 20040831, end: 20041129
  2. CORTICOSTEROIDS [Concomitant]
  3. CELLCEPT [Concomitant]
  4. SIMULECT [Concomitant]

REACTIONS (2)
  - GENERAL PHYSICAL HEALTH DETERIORATION [None]
  - STRONGYLOIDIASIS [None]
